FAERS Safety Report 7190938-7 (Version None)
Quarter: 2010Q4

REPORT INFORMATION
  Report Type: 
  Country: None (occurrence: None)
  Receive Date: 20101207
  Receipt Date: 20101129
  Transmission Date: 20110411
  Serious: Yes (Hospitalization)
  Sender: FDA-Public Use
  Company Number: 2010SP062292

PATIENT
  Age: 34 Year
  Sex: Female

DRUGS (6)
  1. PUREGON (FOLLITROPIN BETA / 0138901/) [Suspect]
     Indication: ASSISTED FERTILISATION
     Dosage: SEE IMAGE: SC
     Route: 058
     Dates: start: 20100223, end: 20100301
  2. PUREGON (FOLLITROPIN BETA / 0138901/) [Suspect]
     Indication: ASSISTED FERTILISATION
     Dosage: SEE IMAGE: SC
     Route: 058
     Dates: start: 20100303, end: 20100303
  3. PUREGON (FOLLITROPIN BETA / 0138901/) [Suspect]
     Indication: ASSISTED FERTILISATION
     Dosage: SEE IMAGE: SC
     Route: 058
     Dates: start: 20100304, end: 20100304
  4. OVITRELLE (CHORIOGONADOTROPIN ALFA) [Suspect]
     Indication: OVULATION INDUCTION
     Dosage: ONCE; SC
     Route: 058
     Dates: start: 20100306, end: 20100306
  5. LUDEAL (EUGYNON) [Suspect]
     Indication: IN VITRO FERTILISATION
     Dosage: 1 DF; QD; PO
     Route: 048
     Dates: start: 20100201, end: 20100201
  6. FOSTIMON [Suspect]
     Indication: ARTIFICIAL INSEMINATION BY PARTNER
     Dates: start: 20090101, end: 20090101

REACTIONS (1)
  - SUBCLAVIAN VEIN THROMBOSIS [None]
